FAERS Safety Report 8848590 (Version 1)
Quarter: 2012Q4

REPORT INFORMATION
  Report Type: 
  Country: US (occurrence: US)
  Receive Date: 20121018
  Receipt Date: 20121018
  Transmission Date: 20130627
  Serious: Yes (Other)
  Sender: FDA-Public Use
  Company Number: US-ROCHE-1140818

PATIENT
  Age: 16 Year
  Sex: Male

DRUGS (1)
  1. PROTROPIN [Suspect]
     Indication: GROWTH RETARDATION
     Dosage: 7 injections per week
     Route: 058
     Dates: start: 19900914

REACTIONS (2)
  - Ligament rupture [Unknown]
  - Drug dose omission [Unknown]
